FAERS Safety Report 10173937 (Version 3)
Quarter: 2014Q3

REPORT INFORMATION
  Report Type: Report from Study
  Country: DE (occurrence: DE)
  Receive Date: 20140515
  Receipt Date: 20140731
  Transmission Date: 20150326
  Serious: Yes (Death, Life-Threatening, Hospitalization)
  Sender: FDA-Public Use
  Company Number: DE-ELI_LILLY_AND_COMPANY-DE201401007999

PATIENT
  Age: 65 Year
  Sex: Male
  Weight: 99 kg

DRUGS (6)
  1. NOVALGIN [Concomitant]
     Active Substance: METAMIZOLE SODIUM
     Indication: PAIN
     Dosage: UNK
     Dates: start: 201209
  2. 3M CAVILON ANTIFUNGAL [Concomitant]
     Active Substance: MICONAZOLE NITRATE
     Indication: PAINFUL DEFAECATION
     Dosage: UNK
     Dates: start: 20131114
  3. VOCADO [Concomitant]
     Active Substance: AMLODIPINE BESYLATE\OLMESARTAN MEDOXOMIL
     Indication: HYPERTENSION
     Dosage: UNK
     Dates: start: 201205
  4. PANTOPRAZOLE [Concomitant]
     Active Substance: PANTOPRAZOLE SODIUM
     Indication: PROPHYLAXIS
     Dosage: UNK
     Dates: start: 201205
  5. RAMUCIRUMAB [Suspect]
     Active Substance: RAMUCIRUMAB
     Indication: HEPATOCELLULAR CARCINOMA
     Dosage: 8 MG/KG, CYCLICAL
     Dates: start: 20121211, end: 20140109
  6. FAKTU [Concomitant]
     Indication: HAEMORRHOIDS
     Dosage: UNK
     Dates: start: 20131018

REACTIONS (4)
  - Peritonitis [Not Recovered/Not Resolved]
  - Large intestine perforation [Recovered/Resolved]
  - Sepsis [Fatal]
  - Anal abscess [Not Recovered/Not Resolved]

NARRATIVE: CASE EVENT DATE: 20140121
